FAERS Safety Report 15499517 (Version 2)
Quarter: 2018Q4

REPORT INFORMATION
  Report Type: Report from Study
  Country: CA (occurrence: CA)
  Receive Date: 20181015
  Receipt Date: 20181206
  Transmission Date: 20190205
  Serious: Yes (Hospitalization, Other)
  Sender: FDA-Public Use
  Company Number: CA-JNJFOC-20180827394

PATIENT
  Sex: Male

DRUGS (1)
  1. STELARA [Suspect]
     Active Substance: USTEKINUMAB
     Indication: CROHN^S DISEASE
     Route: 058
     Dates: start: 20171028

REACTIONS (6)
  - Prostatic mass [Unknown]
  - Urinary tract infection [Unknown]
  - Bone loss [Unknown]
  - Dental caries [Unknown]
  - Gingivitis [Not Recovered/Not Resolved]
  - Nerve root injury [Unknown]

NARRATIVE: CASE EVENT DATE: 2018
